FAERS Safety Report 22802248 (Version 4)
Quarter: 2024Q1

REPORT INFORMATION
  Report Type: Spontaneous
  Country: US (occurrence: US)
  Receive Date: 20230809
  Receipt Date: 20240112
  Transmission Date: 20240409
  Serious: Yes (Other)
  Sender: FDA-Public Use
  Company Number: US-BRISTOL-MYERS SQUIBB COMPANY-2023-111775

PATIENT
  Age: 84 Year
  Sex: Female
  Weight: 72.8 kg

DRUGS (10)
  1. REVLIMID [Suspect]
     Active Substance: LENALIDOMIDE
     Indication: Product used for unknown indication
     Dosage: FREQUENCY: ONCE DAILY 21 DAYS ON 7 DAYS OFF
     Route: 048
     Dates: start: 20230501
  2. ACYCLOVIR [Concomitant]
     Active Substance: ACYCLOVIR
     Indication: Product used for unknown indication
  3. ASPIRIN [Concomitant]
     Active Substance: ASPIRIN
     Indication: Product used for unknown indication
  4. FENTANYL [Concomitant]
     Active Substance: FENTANYL\FENTANYL CITRATE
     Indication: Product used for unknown indication
     Dosage: PATCHES
  5. MIRALAX [Concomitant]
     Active Substance: POLYETHYLENE GLYCOL 3350
     Indication: Product used for unknown indication
  6. NINLARO [Concomitant]
     Active Substance: IXAZOMIB CITRATE
     Indication: Product used for unknown indication
  7. OMEPRAZOLE [Concomitant]
     Active Substance: OMEPRAZOLE
     Indication: Product used for unknown indication
  8. SENNA LEAF [Concomitant]
     Active Substance: SENNA LEAF
     Indication: Product used for unknown indication
  9. SODIUM CHLORIDE [Concomitant]
     Active Substance: SODIUM CHLORIDE
     Indication: Product used for unknown indication
  10. TYLENOL [Concomitant]
     Active Substance: ACETAMINOPHEN
     Indication: Product used for unknown indication
     Dosage: EXTRA STRENGTH

REACTIONS (7)
  - Pruritus [Recovered/Resolved]
  - Scratch [Not Recovered/Not Resolved]
  - Fatigue [Not Recovered/Not Resolved]
  - Myalgia [Not Recovered/Not Resolved]
  - Dysstasia [Not Recovered/Not Resolved]
  - Diarrhoea [Recovered/Resolved]
  - Drug ineffective [Unknown]
